FAERS Safety Report 9174603 (Version 1)
Quarter: 2013Q1

REPORT INFORMATION
  Report Type: Spontaneous
  Country: US (occurrence: US)
  Receive Date: 20130320
  Receipt Date: 20130320
  Transmission Date: 20140127
  Serious: Yes (Other)
  Sender: FDA-Public Use
  Company Number: US-BAYER-2013-030787

PATIENT
  Sex: Female

DRUGS (1)
  1. CIPRO [Suspect]
     Indication: EAR INFECTION
     Dosage: UNK

REACTIONS (5)
  - Infection [None]
  - Drug ineffective [None]
  - Adverse drug reaction [None]
  - Palpitations [None]
  - Dizziness [None]
